FAERS Safety Report 7583220-7 (Version None)
Quarter: 2011Q2

REPORT INFORMATION
  Report Type: 
  Country: None (occurrence: None)
  Receive Date: 20110630
  Receipt Date: 20110618
  Transmission Date: 20111010
  Serious: Yes (Hospitalization, Other)
  Sender: FDA-Public Use
  Company Number: US-AMGEN-USASP2010006158

PATIENT
  Age: 58 Year
  Sex: Female

DRUGS (6)
  1. ENBREL [Suspect]
  2. ORENCIA [Concomitant]
     Dosage: UNK
  3. PREDNISONE [Concomitant]
     Dosage: UNK
  4. ENBREL [Suspect]
     Indication: ANKYLOSING SPONDYLITIS
     Dosage: UNK
     Dates: start: 20100101
  5. SIMPONI [Concomitant]
     Dosage: UNK
  6. ENBREL [Suspect]
     Indication: RHEUMATOID ARTHRITIS
     Dosage: 50 MG, QWK
     Dates: start: 20010101, end: 20030101

REACTIONS (12)
  - TRANSIENT ISCHAEMIC ATTACK [None]
  - PAIN [None]
  - FALL [None]
  - FATIGUE [None]
  - SPINAL DECOMPRESSION [None]
  - RHEUMATOID ARTHRITIS [None]
  - WEIGHT INCREASED [None]
  - SINUSITIS [None]
  - BACK PAIN [None]
  - VISUAL IMPAIRMENT [None]
  - HEADACHE [None]
  - HEPATITIS C [None]
